FAERS Safety Report 4748195-4 (Version None)
Quarter: 2005Q3

REPORT INFORMATION
  Report Type: 
  Country: None (occurrence: None)
  Receive Date: 20050818
  Receipt Date: 20050809
  Transmission Date: 20060218
  Serious: Yes (Hospitalization)
  Sender: FDA-Public Use
  Company Number: US-JNJFOC-20050703088

PATIENT
  Sex: Male
  Weight: 55.79 kg

DRUGS (9)
  1. RISPERDAL [Suspect]
     Indication: DISTURBANCE IN SOCIAL BEHAVIOUR
     Route: 048
  2. RISPERDAL [Suspect]
     Route: 048
  3. RISPERDAL [Suspect]
     Indication: AUTISM
     Route: 048
  4. RISPERDAL [Suspect]
     Indication: AGGRESSION
     Route: 048
  5. ADDERALL XR 15 [Concomitant]
     Route: 048
  6. ADDERALL XR 15 [Concomitant]
     Route: 048
  7. ADDERALL XR 15 [Concomitant]
     Route: 048
  8. ADDERALL XR 15 [Concomitant]
     Dosage: (30 MG IN AM, 10 MG IN PM)
     Route: 048
  9. CLONIDINE [Concomitant]

REACTIONS (7)
  - DEHYDRATION [None]
  - LIVER FUNCTION TEST ABNORMAL [None]
  - OTITIS MEDIA [None]
  - PANCYTOPENIA [None]
  - PYREXIA [None]
  - SEDATION [None]
  - SPLENOMEGALY [None]
